FAERS Safety Report 7833793-1 (Version None)
Quarter: 2011Q4

REPORT INFORMATION
  Report Type: 
  Country: None (occurrence: None)
  Receive Date: 20111024
  Receipt Date: 20111012
  Transmission Date: 20120403
  Serious: Yes (Death, Hospitalization, Other)
  Sender: FDA-Public Use
  Company Number: US-ROCHE-733624

PATIENT
  Age: 67 Year
  Sex: Female
  Weight: 123.9 kg

DRUGS (18)
  1. ISOSORBIDE DINITRATE [Concomitant]
  2. MYCOPHENOLATE MOFETIL (CELLCEPT) [Suspect]
     Route: 048
     Dates: start: 20091112, end: 20091118
  3. CYCLOSPORINE [Suspect]
     Indication: PROPHYLAXIS AGAINST TRANSPLANT REJECTION
     Route: 048
     Dates: start: 20090616, end: 20091124
  4. CYCLOSPORINE [Suspect]
     Route: 048
     Dates: start: 20090616, end: 20091124
  5. SODIUM BICARBONATE [Concomitant]
  6. MOXIFLOXACIN [Concomitant]
  7. MYCOPHENOLATE MOFETIL (CELLCEPT) [Suspect]
     Indication: PROPHYLAXIS AGAINST TRANSPLANT REJECTION
     Route: 048
     Dates: start: 20080711, end: 20090914
  8. ADVAIR DISKUS 100/50 [Concomitant]
  9. FLUNISOLIDE [Concomitant]
  10. LEVOTHYROXINE SODIUM [Concomitant]
  11. MYCOPHENOLATE MOFETIL (CELLCEPT) [Suspect]
     Route: 048
     Dates: start: 20090915, end: 20091111
  12. PREDNISONE [Suspect]
     Indication: PROPHYLAXIS AGAINST TRANSPLANT REJECTION
     Route: 048
     Dates: start: 20080721, end: 20091124
  13. SPIRIVA [Concomitant]
  14. HYDRALAZINE HCL [Concomitant]
  15. METOPROLOL TARTRATE [Concomitant]
  16. OMEPRAZOLE [Concomitant]
  17. VALCYTE [Concomitant]
  18. HEPARIN [Concomitant]

REACTIONS (10)
  - LIVER FUNCTION TEST ABNORMAL [None]
  - MENTAL STATUS CHANGES [None]
  - SEPSIS [None]
  - RIGHT VENTRICULAR FAILURE [None]
  - DIABETIC KETOACIDOSIS [None]
  - CHOLELITHIASIS [None]
  - ATRIAL FIBRILLATION [None]
  - RENAL FAILURE ACUTE [None]
  - ATRIAL FLUTTER [None]
  - HAEMODYNAMIC INSTABILITY [None]
